FAERS Safety Report 8105639-8 (Version None)
Quarter: 2012Q1

REPORT INFORMATION
  Report Type: 
  Country: None (occurrence: None)
  Receive Date: 20120201
  Receipt Date: 20120117
  Transmission Date: 20120608
  Serious: Yes (Hospitalization, Other)
  Sender: FDA-Public Use
  Company Number: IE-ROCHE-GNE280326

PATIENT
  Sex: Female
  Weight: 102 kg

DRUGS (4)
  1. XOLAIR [Suspect]
     Dates: start: 20120124
  2. XOLAIR [Suspect]
     Dates: start: 20090331
  3. XOLAIR [Suspect]
     Dates: start: 20090303
  4. XOLAIR [Suspect]
     Indication: ASTHMA
     Dosage: 300 MG, 2/MONTH
     Route: 058

REACTIONS (8)
  - OROPHARYNGEAL PAIN [None]
  - LOSS OF CONSCIOUSNESS [None]
  - WHEEZING [None]
  - LOWER RESPIRATORY TRACT INFECTION [None]
  - PRURITUS [None]
  - ABDOMINAL PAIN [None]
  - HEADACHE [None]
  - RASH [None]
